FAERS Safety Report 8228317-3 (Version None)
Quarter: 2012Q1

REPORT INFORMATION
  Report Type: 
  Country: None (occurrence: None)
  Receive Date: 20120322
  Receipt Date: 20120316
  Transmission Date: 20120608
  Serious: Yes (Hospitalization, Other)
  Sender: FDA-Public Use
  Company Number: US-AMGEN-USASP2011021412

PATIENT
  Sex: Female

DRUGS (11)
  1. MULTI-VITAMIN [Concomitant]
     Dosage: UNK UNK, QD
     Route: 048
  2. EMLA [Concomitant]
     Dosage: 2.5 %, UNK
     Route: 061
  3. PHENERGAN [Concomitant]
     Dosage: 12.5 MG, PRN
     Route: 048
  4. DIGESTIVE ENZYME [Concomitant]
     Dosage: UNK
     Dates: start: 20081007
  5. DILAUDID [Concomitant]
     Dosage: 4 MG, UNK
     Route: 048
  6. XGEVA [Suspect]
     Indication: METASTASES TO BONE
     Dosage: 120 MG, ONE TIME DOSE
     Dates: start: 20110207
  7. BACLOFEN [Concomitant]
     Route: 048
  8. COMPAZINE [Concomitant]
     Dosage: 5 MG, Q6H
     Route: 048
  9. ATIVAN [Concomitant]
     Dosage: 1 MG, Q8H
     Route: 048
     Dates: start: 20100908, end: 20110307
  10. XGEVA [Suspect]
     Indication: BREAST CANCER
  11. ZOFRAN [Concomitant]
     Dosage: 8 MG, Q8H
     Route: 048

REACTIONS (6)
  - PYREXIA [None]
  - SWELLING [None]
  - TACHYCARDIA [None]
  - STAPHYLOCOCCUS TEST POSITIVE [None]
  - DYSURIA [None]
  - METASTASIS [None]
